FAERS Safety Report 19899800 (Version 1)
Quarter: 2021Q3

REPORT INFORMATION
  Report Type: Spontaneous
  Country: US (occurrence: US)
  Receive Date: 20210930
  Receipt Date: 20210930
  Transmission Date: 20211014
  Serious: Yes (Hospitalization, Other)
  Sender: FDA-Public Use
  Company Number: US-GLAXOSMITHKLINE-USCH2021AMR067360

PATIENT
  Age: 67 Year
  Sex: Male
  Weight: 103.5 kg

DRUGS (3)
  1. NICODERM CQ [Suspect]
     Active Substance: NICOTINE
     Indication: SMOKING CESSATION THERAPY
     Dosage: 1 PATCH QD
     Dates: start: 199203, end: 1992
  2. HABITROL [Concomitant]
     Active Substance: NICOTINE
     Indication: PRODUCT USED FOR UNKNOWN INDICATION
     Dosage: UNK
     Dates: start: 2018
  3. NICOTINE TRANSDERMAL SYSTEM [Concomitant]
     Active Substance: NICOTINE
     Indication: PRODUCT USED FOR UNKNOWN INDICATION
     Dosage: UNK

REACTIONS (6)
  - Drug hypersensitivity [Unknown]
  - Drug intolerance [Unknown]
  - Near death experience [Unknown]
  - Drug ineffective [Unknown]
  - Off label use [Unknown]
  - Oedema [Unknown]

NARRATIVE: CASE EVENT DATE: 1992
